FAERS Safety Report 24751957 (Version 2)
Quarter: 2025Q1

REPORT INFORMATION
  Report Type: Spontaneous
  Country: US (occurrence: US)
  Receive Date: 20241219
  Receipt Date: 20250106
  Transmission Date: 20250409
  Serious: No
  Sender: GLAXOSMITHKLINE
  Company Number: US-GSK-US2024AMR153384

PATIENT
  Age: 49 Year
  Sex: Female

DRUGS (1)
  1. BENLYSTA [Suspect]
     Active Substance: BELIMUMAB
     Indication: Systemic lupus erythematosus
     Dosage: 200 MG/ML, WE
     Route: 058

REACTIONS (11)
  - Rash [Unknown]
  - Nausea [Unknown]
  - Migraine [Unknown]
  - Fatigue [Unknown]
  - Mood altered [Unknown]
  - Pain [Unknown]
  - Scar [Unknown]
  - Hypersensitivity [Unknown]
  - Dyspnoea [Unknown]
  - Arthralgia [Unknown]
  - Pruritus [Unknown]

NARRATIVE: CASE EVENT DATE: 20241210
